FAERS Safety Report 12266452 (Version 2)
Quarter: 2016Q2

REPORT INFORMATION
  Report Type: Spontaneous
  Country: RU (occurrence: RU)
  Receive Date: 20160414
  Receipt Date: 20160425
  Transmission Date: 20160815
  Serious: Yes (Death, Other)
  Sender: FDA-Public Use
  Company Number: RU-ALLERGAN-1653672US

PATIENT
  Age: 35 Year
  Sex: Female
  Weight: 50 kg

DRUGS (4)
  1. PHENTANYL [Suspect]
     Active Substance: FENTANYL
     Indication: GENERAL ANAESTHESIA
  2. ESMYA [Suspect]
     Active Substance: ULIPRISTAL ACETATE
     Indication: UTERINE LEIOMYOMA
     Dosage: 5 MG, UNK
     Route: 048
     Dates: end: 20160301
  3. PROMEDOL /01498801/ [Suspect]
     Active Substance: TRIMEPERIDINE
     Indication: GENERAL ANAESTHESIA
  4. KETAMINE [Suspect]
     Active Substance: KETAMINE
     Indication: GENERAL ANAESTHESIA
     Dosage: UNK
     Dates: start: 20160322, end: 20160322

REACTIONS (4)
  - Incorrect drug administration duration [Unknown]
  - Cardiopulmonary failure [Fatal]
  - Cardiomyopathy [Unknown]
  - Drug ineffective [Unknown]

NARRATIVE: CASE EVENT DATE: 20160322
